FAERS Safety Report 5549552-9 (Version None)
Quarter: 2007Q4

REPORT INFORMATION
  Report Type: 
  Country: None (occurrence: None)
  Receive Date: 20071212
  Receipt Date: 20071204
  Transmission Date: 20080405
  Serious: Yes (Other)
  Sender: FDA-Public Use
  Company Number: PHBS2005BR11949

PATIENT
  Age: 61 Year
  Sex: Female
  Weight: 95 kg

DRUGS (8)
  1. FORADIL [Suspect]
     Indication: ASTHMA
     Dosage: 12 UG, PRN
     Dates: start: 20010101
  2. SYNTHROID [Concomitant]
     Indication: HYPOTHYROIDISM
     Dosage: 50 UG, QD
     Route: 048
     Dates: start: 20050501, end: 20060701
  3. GEMFIBROZIL [Concomitant]
     Indication: BLOOD TRIGLYCERIDES
     Dosage: 600 MG ONCE AT NIGHT
     Route: 048
     Dates: start: 19960101
  4. ASPIRIN [Concomitant]
     Indication: PERIPHERAL VASCULAR DISORDER
     Dosage: 100 MG AFTER LUNCH
     Route: 048
     Dates: start: 20041101
  5. PURAN T4 [Concomitant]
     Indication: THYROID DISORDER
     Dosage: ONE TABLET DAILY IN FASTING
     Route: 048
     Dates: start: 20060701
  6. LOSARTAN POTASSIUM [Concomitant]
     Indication: HYPERTENSION
     Dosage: 1 TABLET AFTER BREAKFAST
     Route: 048
  7. LEXOTAN [Concomitant]
     Indication: ANXIETY
     Dosage: 3 MG/DAY
     Route: 048
  8. FORASEQ [Concomitant]
     Indication: EMPHYSEMA
     Dosage: 12/400 MCG, Q12H

REACTIONS (13)
  - ANXIETY [None]
  - CARDIOMEGALY [None]
  - CHEST DISCOMFORT [None]
  - COUGH [None]
  - DYSPNOEA [None]
  - ECHOCARDIOGRAM ABNORMAL [None]
  - EMPHYSEMA [None]
  - INFLUENZA [None]
  - MUSCULOSKELETAL DISCOMFORT [None]
  - PALPITATIONS [None]
  - TACHYCARDIA [None]
  - THROAT IRRITATION [None]
  - TREMOR [None]
